FAERS Safety Report 21209069 (Version 5)
Quarter: 2022Q4

REPORT INFORMATION
  Report Type: Report from Study
  Country: US (occurrence: US)
  Receive Date: 20220812
  Receipt Date: 20221216
  Transmission Date: 20230113
  Serious: Yes (Other)
  Sender: FDA-Public Use
  Company Number: US-ABBVIE-22K-163-4501709-00

PATIENT
  Age: 63 Year
  Sex: Female

DRUGS (2)
  1. HUMIRA [Suspect]
     Active Substance: ADALIMUMAB
     Indication: Rheumatoid arthritis
     Route: 058
     Dates: end: 2022
  2. HUMIRA [Suspect]
     Active Substance: ADALIMUMAB
     Dosage: FIRST ADMINISTRATION DATE WAS 2022
     Route: 058

REACTIONS (9)
  - Neck surgery [Recovering/Resolving]
  - Cerebrospinal fluid leakage [Recovered/Resolved]
  - Neoplasm [Recovered/Resolved]
  - Shoulder arthroplasty [Recovered/Resolved]
  - Anxiety [Unknown]
  - Influenza [Recovering/Resolving]
  - Intentional product misuse [Unknown]
  - Paranasal sinus hypersecretion [Unknown]
  - Stress [Unknown]

NARRATIVE: CASE EVENT DATE: 20190601
